FAERS Safety Report 24671776 (Version 2)
Quarter: 2024Q4

REPORT INFORMATION
  Report Type: Spontaneous
  Country: FR (occurrence: FR)
  Receive Date: 20241127
  Receipt Date: 20241226
  Transmission Date: 20250115
  Serious: Yes (Hospitalization)
  Sender: TEVA
  Company Number: None

PATIENT
  Age: 80 Year
  Sex: Male
  Weight: 62 kg

DRUGS (13)
  1. METFORMIN [Suspect]
     Active Substance: METFORMIN HYDROCHLORIDE
     Indication: Type 2 diabetes mellitus
     Route: 048
     Dates: end: 20240817
  2. RAMIPRIL [Concomitant]
     Active Substance: RAMIPRIL
     Indication: Product used for unknown indication
     Route: 065
  3. ELIQUIS [Concomitant]
     Active Substance: APIXABAN
     Indication: Product used for unknown indication
     Route: 065
  4. CYANOCOBALAMIN [Concomitant]
     Active Substance: CYANOCOBALAMIN
     Indication: Product used for unknown indication
     Route: 065
  5. EBASTINE [Concomitant]
     Active Substance: EBASTINE
     Indication: Product used for unknown indication
     Route: 065
  6. TAMSULOSIN HYDROCHLORIDE [Concomitant]
     Active Substance: TAMSULOSIN HYDROCHLORIDE
     Indication: Product used for unknown indication
     Route: 065
  7. FUROSEMIDE [Concomitant]
     Active Substance: FUROSEMIDE
     Indication: Product used for unknown indication
     Route: 065
  8. AMLODIPINE [Concomitant]
     Active Substance: AMLODIPINE BESYLATE
     Indication: Product used for unknown indication
     Route: 065
  9. PANTOPRAZOLE [Concomitant]
     Active Substance: PANTOPRAZOLE
     Indication: Product used for unknown indication
     Route: 065
  10. BECLOMETHASONE DIPROPIONATE\FORMOTEROL FUMARATE\GLYCOPYRROLATE [Concomitant]
     Active Substance: BECLOMETHASONE DIPROPIONATE\FORMOTEROL FUMARATE\GLYCOPYRROLATE
     Indication: Product used for unknown indication
     Dosage: 87 MICROGRAMS/5 MICROGRAMS/9 MICROGRAMS, SOLUTION FOR INHALATION IN PRESSURIZED CONTAINER
     Route: 065
  11. TAHOR [Concomitant]
     Active Substance: ATORVASTATIN CALCIUM
     Indication: Product used for unknown indication
     Route: 065
  12. ALDACTONE [Concomitant]
     Active Substance: SPIRONOLACTONE
     Indication: Product used for unknown indication
     Dosage: SCORED FILM-COATED TABLET
     Route: 065
  13. FERROUS SULFATE [Concomitant]
     Active Substance: FERROUS SULFATE
     Indication: Product used for unknown indication
     Route: 065

REACTIONS (2)
  - Lactic acidosis [Recovered/Resolved]
  - Drug level above therapeutic [Recovered/Resolved]

NARRATIVE: CASE EVENT DATE: 20240807
